FAERS Safety Report 20159578 (Version 1)
Quarter: 2021Q4

REPORT INFORMATION
  Report Type: Spontaneous
  Country: US (occurrence: US)
  Receive Date: 20211208
  Receipt Date: 20211208
  Transmission Date: 20220303
  Serious: No
  Sender: FDA-Public Use
  Company Number: US-AMGEN-USASP2021192455

PATIENT
  Sex: Female

DRUGS (3)
  1. MVASI [Suspect]
     Active Substance: BEVACIZUMAB-AWWB
     Indication: Ovarian cancer
     Dosage: UNK UNK, Q3WK
     Route: 065
     Dates: start: 202106
  2. CARBOPLATIN [Concomitant]
     Active Substance: CARBOPLATIN
     Dosage: UNK
  3. PACLITAXEL [Concomitant]
     Active Substance: PACLITAXEL
     Dosage: UNK

REACTIONS (4)
  - Abdominal discomfort [Unknown]
  - Abdominal distension [Unknown]
  - Off label use [Unknown]
  - Carbohydrate antigen 125 increased [Recovered/Resolved]

NARRATIVE: CASE EVENT DATE: 20210701
